FAERS Safety Report 12160256 (Version 1)
Quarter: 2016Q1

REPORT INFORMATION
  Report Type: Spontaneous
  Country: US (occurrence: US)
  Receive Date: 20160308
  Receipt Date: 20160308
  Transmission Date: 20160526
  Serious: No
  Sender: FDA-Public Use
  Company Number: US-AMNEAL PHARMACEUTICALS-2016AMN00131

PATIENT
  Sex: Female
  Weight: 49.89 kg

DRUGS (4)
  1. THERMACARE NECK, SHOULDER + WRIST HEAT WRAPS [Concomitant]
     Indication: INTERVERTEBRAL DISC DEGENERATION
     Dosage: UNK
  2. CIPRO [Concomitant]
     Active Substance: CIPROFLOXACIN HYDROCHLORIDE
     Indication: URINARY TRACT INFECTION
     Dosage: 250 MG, 2X/DAY
     Dates: start: 20150304
  3. SULFAMETHOXAZOLE AND TRIMETHOPRIM [Suspect]
     Active Substance: SULFAMETHOXAZOLE\TRIMETHOPRIM
     Indication: URINARY TRACT INFECTION
     Route: 048
  4. NECK HEAT WRAPS [Concomitant]
     Dosage: UNK
     Dates: start: 1984

REACTIONS (1)
  - Drug ineffective [Unknown]
